FAERS Safety Report 14310618 (Version 2)
Quarter: 2018Q1

REPORT INFORMATION
  Report Type: Spontaneous
  Country: DE (occurrence: DE)
  Receive Date: 20171220
  Receipt Date: 20180111
  Transmission Date: 20180509
  Serious: Yes (Hospitalization, Other)
  Sender: FDA-Public Use
  Company Number: DE-VISTAPHARM, INC.-VER201712-001413

PATIENT
  Age: 47 Year
  Sex: Male

DRUGS (2)
  1. VALPROIC ACID. [Suspect]
     Active Substance: VALPROIC ACID
     Indication: DEPRESSIVE SYMPTOM
  2. VALPROIC ACID. [Suspect]
     Active Substance: VALPROIC ACID
     Indication: BIPOLAR DISORDER

REACTIONS (4)
  - Renal failure [Recovered/Resolved]
  - Carnitine decreased [Recovered/Resolved]
  - Rhabdomyolysis [Recovered/Resolved]
  - Drug-disease interaction [Recovered/Resolved]
